FAERS Safety Report 5584450-6 (Version None)
Quarter: 2008Q1

REPORT INFORMATION
  Report Type: 
  Country: None (occurrence: None)
  Receive Date: 20080108
  Receipt Date: 20080107
  Transmission Date: 20080703
  Serious: Yes (Hospitalization, Other)
  Sender: FDA-Public Use
  Company Number: DE-JNJFOC-20071203902

PATIENT
  Sex: Female

DRUGS (3)
  1. RISPERDAL CONSTA [Suspect]
     Indication: SCHIZOPHRENIA
     Route: 030
  2. SYMBICORT 160/12.5 [Concomitant]
     Indication: ASTHMA
     Route: 055
  3. BERODUAL [Concomitant]
     Route: 055

REACTIONS (1)
  - GLAUCOMA [None]
